FAERS Safety Report 12779500 (Version 1)
Quarter: 2016Q3

REPORT INFORMATION
  Report Type: Spontaneous
  Country: US (occurrence: US)
  Receive Date: 20160923
  Receipt Date: 20160923
  Transmission Date: 20161109
  Serious: Yes (Hospitalization)
  Sender: FDA-Public Use
  Company Number: None

PATIENT
  Age: 48 Year
  Sex: Female
  Weight: 81.9 kg

DRUGS (10)
  1. D [Concomitant]
  2. HAIR SKIN AND NAILS [Concomitant]
  3. MIRALAX [Suspect]
     Active Substance: POLYETHYLENE GLYCOL 3350
     Indication: BOWEL MOVEMENT IRREGULARITY
     Dosage: OTHER STRENGTH:;OTHER DOSE:BOTTLES;OTHER FREQUENCY:;OTHER ROUTE:
     Route: 042
     Dates: start: 20160918, end: 20160918
  4. ASTELIN [Concomitant]
     Active Substance: AZELASTINE HYDROCHLORIDE
  5. NASONEX [Concomitant]
     Active Substance: MOMETASONE FUROATE
  6. BIOTIN [Concomitant]
     Active Substance: BIOTIN
  7. NEXIUM [Concomitant]
     Active Substance: ESOMEPRAZOLE MAGNESIUM
  8. TOPAMAX [Concomitant]
     Active Substance: TOPIRAMATE
  9. ZOLOFT [Concomitant]
     Active Substance: SERTRALINE HYDROCHLORIDE
  10. ONE A DAY MULTI VITAMIN [Concomitant]

REACTIONS (7)
  - Incorrect route of drug administration [None]
  - Diarrhoea [None]
  - Vascular access site bruising [None]
  - Dehydration [None]
  - Accidental overdose [None]
  - Poor venous access [None]
  - Vascular access site haematoma [None]

NARRATIVE: CASE EVENT DATE: 20160918
